FAERS Safety Report 6681998-8 (Version None)
Quarter: 2010Q2

REPORT INFORMATION
  Report Type: 
  Country: None (occurrence: None)
  Receive Date: 20100414
  Receipt Date: 20100414
  Transmission Date: 20101027
  Serious: No
  Sender: FDA-Public Use
  Company Number: None

PATIENT
  Sex: Female

DRUGS (1)
  1. LAMICTAL [Suspect]
     Indication: CONVULSION
     Dosage: 100-150 MG/DAY QD - BID ORAL
     Route: 048

REACTIONS (2)
  - FEELING ABNORMAL [None]
  - STICKY SKIN [None]
